FAERS Safety Report 24078165 (Version 1)
Quarter: 2024Q3

REPORT INFORMATION
  Report Type: Spontaneous
  Country: GB (occurrence: GB)
  Receive Date: 20240711
  Receipt Date: 20240711
  Transmission Date: 20241017
  Serious: Yes (Other)
  Sender: ALKEM
  Company Number: None

PATIENT
  Age: 78 Year
  Sex: Male
  Weight: 91 kg

DRUGS (1)
  1. SOLIFENACIN [Suspect]
     Active Substance: SOLIFENACIN
     Indication: Product used for unknown indication
     Dosage: UNK
     Route: 065

REACTIONS (6)
  - Circulatory collapse [Unknown]
  - Dizziness [Recovered/Resolved]
  - Medication error [Unknown]
  - Enuresis [Unknown]
  - Vision blurred [Unknown]
  - Dry mouth [Unknown]

NARRATIVE: CASE EVENT DATE: 20240623
